FAERS Safety Report 16927293 (Version 1)
Quarter: 2019Q4

REPORT INFORMATION
  Report Type: Spontaneous
  Country: US (occurrence: US)
  Receive Date: 20191016
  Receipt Date: 20191016
  Transmission Date: 20200122
  Serious: No
  Sender: FDA-Public Use
  Company Number: US-OPTINOSE US, INC-2019OPT000750

PATIENT
  Age: 41 Year
  Sex: Male

DRUGS (1)
  1. XHANCE [Suspect]
     Active Substance: FLUTICASONE PROPIONATE
     Indication: PRODUCT USED FOR UNKNOWN INDICATION
     Dosage: 2 SPRAYS PER NOSTRIL IN THE MORNING, 1 SPRAY FOR NIGHTTIME DOSE
     Route: 045

REACTIONS (3)
  - Therapeutic response unexpected [Unknown]
  - Nasal discharge discolouration [Unknown]
  - Product administration error [Unknown]
